FAERS Safety Report 21161768 (Version 6)
Quarter: 2022Q3

REPORT INFORMATION
  Report Type: Report from Study
  Country: CA (occurrence: CA)
  Receive Date: 20220802
  Receipt Date: 20220812
  Transmission Date: 20221027
  Serious: Yes (Hospitalization, Other)
  Sender: FDA-Public Use
  Company Number: CA-HLS-202201452

PATIENT
  Age: 33 Year
  Sex: Male

DRUGS (1)
  1. CLOZARIL [Suspect]
     Active Substance: CLOZAPINE
     Indication: Product used for unknown indication
     Dosage: UNKNOWN
     Route: 048
     Dates: start: 20220506, end: 20220729

REACTIONS (7)
  - Neutropenia [Unknown]
  - Confusional state [Unknown]
  - COVID-19 [Unknown]
  - Neutropenia [Unknown]
  - Leukopenia [Unknown]
  - Therapy interrupted [Unknown]
  - Leukopenia [Unknown]

NARRATIVE: CASE EVENT DATE: 20220727
